FAERS Safety Report 9718415 (Version 1)
Quarter: 2013Q4

REPORT INFORMATION
  Report Type: Not Available
  Country: US (occurrence: US)
  Receive Date: 20131125
  Receipt Date: 20131125
  Transmission Date: 20140711
  Serious: No
  Sender: FDA-Public Use
  Company Number: US-VIVUS-2013V1000601

PATIENT
  Age: 48 Year
  Sex: Female
  Weight: 102.15 kg

DRUGS (6)
  1. QSYMIA 11.25MG/69MG [Suspect]
     Indication: OBESITY
     Route: 048
     Dates: start: 20130628, end: 20130808
  2. QSYMIA 7.5MG/46MG [Suspect]
     Indication: WEIGHT DECREASED
     Route: 048
     Dates: start: 2013, end: 201306
  3. QSYMIA 7.5MG/46MG [Suspect]
     Route: 048
     Dates: start: 201308
  4. QSYMIA 3.75MG/23MG [Suspect]
     Indication: WEIGHT DECREASED
     Route: 048
     Dates: start: 201301, end: 201301
  5. MULTIVITAMIN [Concomitant]
     Indication: PRODUCT USED FOR UNKNOWN INDICATION
     Dosage: STARTED YEARS AGO
  6. HCTZ [Concomitant]
     Indication: HYPERTENSION
     Dates: start: 2012

REACTIONS (3)
  - Dry skin [Not Recovered/Not Resolved]
  - Vision blurred [Recovered/Resolved]
  - Headache [Recovered/Resolved]
